FAERS Safety Report 17638065 (Version 1)
Quarter: 2020Q2

REPORT INFORMATION
  Report Type: Spontaneous
  Country: US (occurrence: US)
  Receive Date: 20200403
  Receipt Date: 20200403
  Transmission Date: 20200713
  Serious: Yes (Disabling)
  Sender: FDA-Public Use
  Company Number: None

PATIENT
  Age: 81 Year
  Sex: Female
  Weight: 59.87 kg

DRUGS (7)
  1. ASPIRIN. [Concomitant]
     Active Substance: ASPIRIN
  2. PROBIOTIC [Concomitant]
     Active Substance: PROBIOTICS NOS
  3. LEVOFLOXACIN 500MG TABLET [Suspect]
     Active Substance: LEVOFLOXACIN
     Indication: DIVERTICULITIS
     Dosage: 1 PILL
     Route: 048
     Dates: start: 20200115, end: 20200121
  4. FISH OIL [Concomitant]
     Active Substance: FISH OIL
  5. VITAMIN B12 [Concomitant]
     Active Substance: CYANOCOBALAMIN
  6. VITAMIN D3 [Concomitant]
     Active Substance: CHOLECALCIFEROL
  7. CALCIUM [Concomitant]
     Active Substance: CALCIUM

REACTIONS (10)
  - Hypoaesthesia [None]
  - Arthralgia [None]
  - Myalgia [None]
  - Hypokinesia [None]
  - Muscular weakness [None]
  - Gait disturbance [None]
  - Pain in extremity [None]
  - Musculoskeletal stiffness [None]
  - Dysstasia [None]
  - Bone pain [None]

NARRATIVE: CASE EVENT DATE: 20200121
